FAERS Safety Report 9029415 (Version 4)
Quarter: 2013Q2

REPORT INFORMATION
  Report Type: Spontaneous
  Country: US (occurrence: US)
  Receive Date: 20130125
  Receipt Date: 20130517
  Transmission Date: 20140414
  Serious: Yes (Death, Hospitalization)
  Sender: FDA-Public Use
  Company Number: US-JNJFOC-20130106723

PATIENT
  Age: 88 Year
  Sex: Male

DRUGS (10)
  1. RISPERDAL [Suspect]
     Indication: PRODUCT USED FOR UNKNOWN INDICATION
     Route: 048
     Dates: start: 20111205, end: 20111206
  2. RISPERDAL [Suspect]
     Indication: PRODUCT USED FOR UNKNOWN INDICATION
     Route: 048
     Dates: start: 20111209
  3. RISPERDAL [Suspect]
     Indication: PRODUCT USED FOR UNKNOWN INDICATION
     Route: 048
     Dates: start: 20111207
  4. RISPERDAL [Suspect]
     Indication: PRODUCT USED FOR UNKNOWN INDICATION
     Route: 048
     Dates: start: 20111208
  5. ATIVAN [Suspect]
     Indication: PRODUCT USED FOR UNKNOWN INDICATION
     Dosage: 2MG/ML SOLUTION 1 MG ONCE IN 6 HOURS AS NECESSARY
     Route: 042
     Dates: start: 20111201
  6. ASPIRIN [Concomitant]
     Indication: PRODUCT USED FOR UNKNOWN INDICATION
     Route: 065
  7. AMITRIPTYLINE [Concomitant]
     Indication: RESTLESS LEGS SYNDROME
     Route: 065
     Dates: start: 2008
  8. WARFARIN [Concomitant]
     Indication: CARDIAC DISORDER
     Route: 065
     Dates: start: 2004
  9. METOPROLOL [Concomitant]
     Indication: BLOOD PRESSURE
     Route: 065
  10. CALCIUM [Concomitant]
     Route: 065

REACTIONS (29)
  - Pneumonia [Fatal]
  - Diarrhoea [Unknown]
  - Pulmonary oedema [Unknown]
  - Feeling abnormal [Unknown]
  - Clostridium difficile infection [Unknown]
  - Chondrocalcinosis pyrophosphate [Unknown]
  - International normalised ratio increased [Unknown]
  - Pericardial effusion [Unknown]
  - Blood potassium decreased [Unknown]
  - Hallucination, visual [Unknown]
  - Fall [Unknown]
  - Wrong technique in drug usage process [Unknown]
  - Depression [Unknown]
  - Confusional state [Unknown]
  - Agitation [Unknown]
  - Hypotension [Unknown]
  - Choking [Unknown]
  - Hypersomnia [Unknown]
  - Body temperature increased [Recovered/Resolved]
  - Dysphagia [Unknown]
  - Disorientation [Unknown]
  - Aphagia [Unknown]
  - Headache [Unknown]
  - Neck pain [Unknown]
  - Speech disorder [Unknown]
  - Drug dose omission [Unknown]
  - Pharyngeal disorder [Unknown]
  - Cough [Unknown]
  - Faeces discoloured [Unknown]
